FAERS Safety Report 25135537 (Version 2)
Quarter: 2025Q2

REPORT INFORMATION
  Report Type: Spontaneous
  Country: US (occurrence: US)
  Receive Date: 20250328
  Receipt Date: 20250407
  Transmission Date: 20250717
  Serious: No
  Sender: ABBVIE
  Company Number: US-ABBVIE-6195751

PATIENT
  Age: 69 Year
  Sex: Female
  Weight: 70.306 kg

DRUGS (4)
  1. LINZESS [Suspect]
     Active Substance: LINACLOTIDE
     Indication: Constipation
     Dosage: FORM STRENGTH: 145 MICROGRAM
     Route: 048
     Dates: start: 202503
  2. LINZESS [Suspect]
     Active Substance: LINACLOTIDE
     Indication: Constipation
     Route: 048
     Dates: start: 2024, end: 202503
  3. LINZESS [Suspect]
     Active Substance: LINACLOTIDE
     Indication: Constipation
     Route: 048
     Dates: start: 2021, end: 2024
  4. KETOROLAC [Concomitant]
     Active Substance: KETOROLAC TROMETHAMINE
     Indication: Chronic cutaneous lupus erythematosus

REACTIONS (6)
  - Oliguria [Recovered/Resolved]
  - Drug ineffective [Not Recovered/Not Resolved]
  - Constipation [Recovered/Resolved]
  - Abnormal faeces [Recovered/Resolved]
  - Diarrhoea [Recovered/Resolved]
  - Dehydration [Recovered/Resolved]

NARRATIVE: CASE EVENT DATE: 20240101
